FAERS Safety Report 19770108 (Version 2)
Quarter: 2021Q3

REPORT INFORMATION
  Report Type: Report from Study
  Country: US (occurrence: US)
  Receive Date: 20210831
  Receipt Date: 20210904
  Transmission Date: 20211014
  Serious: Yes (Hospitalization)
  Sender: FDA-Public Use
  Company Number: US-JNJFOC-20210845396

PATIENT
  Age: 66 Year
  Sex: Female

DRUGS (6)
  1. MACITENTAN [Suspect]
     Active Substance: MACITENTAN
     Indication: PULMONARY ARTERIAL HYPERTENSION
     Route: 048
     Dates: start: 20200128
  2. SELEXIPAG [Suspect]
     Active Substance: SELEXIPAG
     Route: 048
     Dates: start: 20210520
  3. MACITENTAN [Suspect]
     Active Substance: MACITENTAN
     Dosage: 10MG 10MG ORAL ONCE DAILY
     Route: 048
     Dates: start: 20210413
  4. SELEXIPAG [Suspect]
     Active Substance: SELEXIPAG
     Route: 048
  5. SELEXIPAG [Suspect]
     Active Substance: SELEXIPAG
     Indication: PULMONARY ARTERIAL HYPERTENSION
     Route: 048
     Dates: start: 20191126
  6. SELEXIPAG [Suspect]
     Active Substance: SELEXIPAG
     Dosage: 200/800MC
     Route: 048
     Dates: start: 20210817

REACTIONS (5)
  - Diarrhoea [Unknown]
  - Nausea [Unknown]
  - Dehydration [Not Recovered/Not Resolved]
  - Hepatic failure [Unknown]
  - Mental status changes [Unknown]

NARRATIVE: CASE EVENT DATE: 20210819
